FAERS Safety Report 14031621 (Version 3)
Quarter: 2018Q1

REPORT INFORMATION
  Report Type: Report from Study
  Country: CA (occurrence: CA)
  Receive Date: 20171002
  Receipt Date: 20180223
  Transmission Date: 20180508
  Serious: Yes (Hospitalization, Other)
  Sender: FDA-Public Use
  Company Number: CA-TAKEDA-2017TUS014890

PATIENT
  Age: 49 Year
  Sex: Female

DRUGS (1)
  1. VEDOLIZUMAB [Suspect]
     Active Substance: VEDOLIZUMAB
     Indication: CROHN^S DISEASE
     Dosage: 300 MG, UNK
     Route: 042
     Dates: start: 20170504, end: 20180209

REACTIONS (9)
  - Proctectomy [Unknown]
  - Proctalgia [Not Recovered/Not Resolved]
  - Post procedural infection [Unknown]
  - Drug ineffective [Not Recovered/Not Resolved]
  - Stoma site pain [Unknown]
  - Laparotomy [Unknown]
  - Arthralgia [Unknown]
  - Fistula [Unknown]
  - Condition aggravated [Unknown]

NARRATIVE: CASE EVENT DATE: 20170504
